FAERS Safety Report 6747448-8 (Version None)
Quarter: 2010Q2

REPORT INFORMATION
  Report Type: 
  Country: None (occurrence: None)
  Receive Date: 20100528
  Receipt Date: 20100518
  Transmission Date: 20101027
  Serious: Yes (Hospitalization)
  Sender: FDA-Public Use
  Company Number: BE-ABBOTT-10P-013-0645366-00

PATIENT
  Sex: Female

DRUGS (7)
  1. HUMIRA [Suspect]
     Indication: PSORIATIC ARTHROPATHY
     Route: 058
     Dates: start: 20060508
  2. LEDERTREXATE [Concomitant]
     Indication: DRUG USE FOR UNKNOWN INDICATION
     Dates: end: 20090922
  3. ARAVA [Concomitant]
     Indication: DRUG USE FOR UNKNOWN INDICATION
  4. MOBIC [Concomitant]
     Indication: DRUG USE FOR UNKNOWN INDICATION
  5. TRIBVIT [Concomitant]
     Indication: DRUG USE FOR UNKNOWN INDICATION
  6. RANTIDINE [Concomitant]
     Indication: DRUG USE FOR UNKNOWN INDICATION
  7. ZYRTEC [Concomitant]
     Indication: DRUG USE FOR UNKNOWN INDICATION

REACTIONS (5)
  - DYSHIDROSIS [None]
  - ERYSIPELAS [None]
  - FATIGUE [None]
  - PSORIATIC ARTHROPATHY [None]
  - TINEA PEDIS [None]
